FAERS Safety Report 10789757 (Version 1)
Quarter: 2015Q1

REPORT INFORMATION
  Report Type: Spontaneous
  Country: US (occurrence: None)
  Receive Date: 20150211
  Receipt Date: 20150211
  Transmission Date: 20150721
  Serious: Yes (Other)
  Sender: FDA-Public Use
  Company Number: None

PATIENT
  Age: 82 Year
  Sex: Male
  Weight: 93.44 kg

DRUGS (5)
  1. KEYTRUDA [Suspect]
     Active Substance: PEMBROLIZUMAB
     Indication: MALIGNANT MELANOMA
     Dosage: 30 MIN DRP   21 DAYS  INTO A VEIN
  2. TAMUSULOSIN 0. 4 MG [Concomitant]
  3. HCT 25/LISINOPRIL 20 MG [Concomitant]
  4. PROPRANOLOL 10 MG [Concomitant]
  5. OMPRAZOLE 20MG [Concomitant]

REACTIONS (3)
  - Pruritus [None]
  - No therapeutic response [None]
  - Rash [None]

NARRATIVE: CASE EVENT DATE: 20141016
